FAERS Safety Report 7933284-3 (Version None)
Quarter: 2011Q4

REPORT INFORMATION
  Report Type: 
  Country: None (occurrence: None)
  Receive Date: 20111121
  Receipt Date: 20111121
  Transmission Date: 20120403
  Serious: Yes (Hospitalization)
  Sender: FDA-Public Use
  Company Number: None

PATIENT
  Age: 69 Year
  Sex: Female
  Weight: 86.1834 kg

DRUGS (3)
  1. CLINDAMYCIN [Suspect]
     Indication: PHARYNGITIS
     Dosage: 2 CAPSULES PER DAY
     Dates: start: 20111029, end: 20111031
  2. CLINDAMYCIN [Suspect]
     Indication: EYE INFECTION
     Dosage: 2 CAPSULES PER DAY
     Dates: start: 20111029, end: 20111031
  3. CLINDAMYCIN [Suspect]
     Indication: RHINITIS
     Dosage: 2 CAPSULES PER DAY
     Dates: start: 20111029, end: 20111031

REACTIONS (1)
  - LIP SWELLING [None]
